FAERS Safety Report 26199048 (Version 1)
Quarter: 2025Q4

REPORT INFORMATION
  Report Type: Spontaneous
  Country: US (occurrence: US)
  Receive Date: 20251225
  Receipt Date: 20251225
  Transmission Date: 20260117
  Serious: Yes (Hospitalization)
  Sender: ACCORD
  Company Number: US-MLMSERVICE-20251205-PI738008-00306-1

PATIENT
  Age: 31 Year

DRUGS (3)
  1. MYCOPHENOLATE MOFETIL [Suspect]
     Active Substance: MYCOPHENOLATE MOFETIL
     Indication: Immunosuppressant drug therapy
  2. TACROLIMUS [Suspect]
     Active Substance: TACROLIMUS
     Indication: Immunosuppressant drug therapy
  3. PREDNISONE [Suspect]
     Active Substance: PREDNISONE
     Indication: Immunosuppressant drug therapy

REACTIONS (7)
  - Toxicity to various agents [Unknown]
  - Mycobacterium haemophilum infection [Unknown]
  - Hypercalcaemia [Recovered/Resolved]
  - Pancytopenia [Recovered/Resolved]
  - Confusional state [Unknown]
  - Renal failure [Unknown]
  - Transplant dysfunction [Recovering/Resolving]

NARRATIVE: CASE EVENT DATE: 20230101
